FAERS Safety Report 10226999 (Version 1)
Quarter: 2014Q2

REPORT INFORMATION
  Report Type: Spontaneous
  Country: US (occurrence: US)
  Receive Date: 20140610
  Receipt Date: 20140610
  Transmission Date: 20141212
  Serious: Yes (Hospitalization)
  Sender: FDA-Public Use
  Company Number: US-ROCHE-1412870

PATIENT
  Age: 67 Year
  Sex: Female

DRUGS (19)
  1. KLONOPIN [Suspect]
     Indication: ANXIETY
     Dosage: 1 ADDITIONAL AS NEEDED
     Route: 048
  2. WELLBUTRIN [Concomitant]
     Route: 065
  3. DEPAKOTE [Concomitant]
     Indication: BIPOLAR DISORDER
     Route: 065
  4. NEURONTIN (UNITED STATES) [Concomitant]
     Indication: NEUROPATHY PERIPHERAL
     Route: 065
  5. NEURONTIN (UNITED STATES) [Concomitant]
     Indication: BIPOLAR DISORDER
  6. AMBIEN [Concomitant]
     Route: 065
  7. LANTUS SOLOSTAR [Concomitant]
     Dosage: AT NIGHT 25UNITS
     Route: 058
  8. PRANDIN [Concomitant]
     Dosage: AT BREAKFAST
     Route: 065
  9. PRANDIN [Concomitant]
     Dosage: AT DINNER
     Route: 065
  10. LOPRESSOR [Concomitant]
     Indication: BLOOD PRESSURE
     Route: 065
  11. NORVASC [Concomitant]
     Indication: BLOOD PRESSURE
     Route: 065
  12. ZETIA [Concomitant]
     Indication: BLOOD CHOLESTEROL INCREASED
     Route: 065
  13. ALLOPURINOL [Concomitant]
     Indication: GOUT
     Route: 065
  14. SYNTHROID [Concomitant]
     Dosage: 25
     Route: 065
  15. FUROSEMIDE [Concomitant]
     Indication: LOCAL SWELLING
     Dosage: AS REQUIRED
     Route: 065
  16. COLACE [Concomitant]
     Route: 065
  17. ADVIL [Concomitant]
     Indication: ARTHRITIS
     Dosage: 2 PILLS
     Route: 065
  18. TYLENOL [Concomitant]
     Indication: ARTHRITIS
     Dosage: 2 PILLS
     Route: 065
  19. ATIVAN [Concomitant]

REACTIONS (5)
  - Choking [Unknown]
  - Fall [Unknown]
  - Dehydration [Unknown]
  - Renal impairment [Unknown]
  - Peripheral swelling [Unknown]
